FAERS Safety Report 6353800-5 (Version None)
Quarter: 2009Q3

REPORT INFORMATION
  Report Type: 
  Country: None (occurrence: None)
  Receive Date: 20090912
  Receipt Date: 20090622
  Transmission Date: 20100115
  Serious: No
  Sender: FDA-Public Use
  Company Number: US-ABBOTT-08P-163-0466883-00

PATIENT
  Sex: Female
  Weight: 54.48 kg

DRUGS (6)
  1. HUMIRA [Suspect]
     Indication: CROHN'S DISEASE
     Route: 050
     Dates: start: 20080711, end: 20080711
  2. HUMIRA [Suspect]
     Route: 050
     Dates: start: 20080725, end: 20080725
  3. HUMIRA [Suspect]
     Route: 050
  4. ORCEA [Concomitant]
     Indication: EYE INFLAMMATION
     Route: 048
     Dates: start: 20070101
  5. ISONIAZID [Concomitant]
     Indication: TUBERCULIN TEST POSITIVE
     Route: 048
     Dates: start: 20080501
  6. IRON [Concomitant]
     Indication: ANAEMIA
     Route: 048

REACTIONS (1)
  - INCORRECT DOSE ADMINISTERED [None]
